FAERS Safety Report 6520330 (Version 20)
Quarter: 2013Q3

REPORT INFORMATION
  Report Type: Spontaneous
  Country: US (occurrence: US)
  Receive Date: 20080107
  Receipt Date: 20130711
  Transmission Date: 20140515
  Serious: Yes (Other)
  Sender: FDA-Public Use
  Company Number: PHEH2008US00459

PATIENT
  Age: 62 Year
  Sex: Female
  Weight: 90.7 kg

DRUGS (29)
  1. AREDIA [Suspect]
     Dosage: 30 MG, MONTHLY
     Route: 042
     Dates: start: 20010305, end: 20020222
  2. ZOMETA [Suspect]
     Indication: BONE LESION
     Dosage: 4 MG, MONTHLY
     Dates: start: 20020312, end: 20030207
  3. ZOMETA [Suspect]
     Indication: OSTEOLYSIS
  4. MELPHALAN [Concomitant]
  5. PREDNISONE [Concomitant]
  6. LASIX [Concomitant]
  7. CIPRO ^MILES^ [Concomitant]
     Dosage: 500 MG, BID
  8. LEVOTHYROXINE [Concomitant]
     Dosage: 150 UG, UNK
  9. FUROSEMIDE [Concomitant]
     Dosage: 40 MG, UNK
  10. MIACALCIN [Concomitant]
     Dosage: 200 IU, UNK
     Route: 045
  11. FLUZONE [Concomitant]
  12. GLIPIZIDE [Concomitant]
     Dosage: 25 MG, UNK
  13. CHLORHEXIDINE [Concomitant]
  14. AMOXICILLIN [Concomitant]
  15. PROAIR HFA (ALBUTEROL SULFATE) INHALATION AEROSOL [Concomitant]
  16. KLOR-CON [Concomitant]
  17. SEREVENT [Concomitant]
  18. PULMICORT [Concomitant]
  19. AVELOX [Concomitant]
     Dosage: 400 MG, QD
  20. ASPIRIN ^BAYER^ [Concomitant]
  21. NYSTATIN [Concomitant]
  22. SYNTHROID [Concomitant]
  23. SINGULAIR [Concomitant]
  24. NEXIUM [Concomitant]
  25. PERIDEX [Concomitant]
  26. VITAMIN D [Concomitant]
  27. DARVON [Concomitant]
  28. ATENOLOL [Concomitant]
  29. ZANTAC [Concomitant]

REACTIONS (78)
  - Rib fracture [Unknown]
  - Osteonecrosis of jaw [Unknown]
  - Pain [Unknown]
  - Injury [Unknown]
  - Anxiety [Unknown]
  - Anhedonia [Unknown]
  - Exposed bone in jaw [Unknown]
  - Toothache [Unknown]
  - Osteomyelitis [Unknown]
  - Mediastinal mass [Unknown]
  - Humerus fracture [Unknown]
  - Spinal osteoarthritis [Unknown]
  - Bone callus excessive [Unknown]
  - Bronchiectasis [Unknown]
  - Diverticulitis [Unknown]
  - Diabetes mellitus [Unknown]
  - Skull X-ray abnormal [Unknown]
  - Scoliosis [Unknown]
  - Plasmacytoma [Unknown]
  - Bone lesion [Unknown]
  - Monoclonal immunoglobulin present [Unknown]
  - Osteopenia [Unknown]
  - Obesity [Recovering/Resolving]
  - Amyloidosis [Unknown]
  - Osteoporosis [Unknown]
  - Oedema peripheral [Unknown]
  - Oesophageal stenosis [Unknown]
  - Blood cholesterol decreased [Unknown]
  - Gastric ulcer [Unknown]
  - Fatigue [Unknown]
  - Asthenia [Unknown]
  - Headache [Unknown]
  - Pyrexia [Unknown]
  - Night sweats [Unknown]
  - Dyspnoea [Unknown]
  - Aspartate aminotransferase decreased [Unknown]
  - Osteosclerosis [Unknown]
  - Intervertebral disc space narrowing [Unknown]
  - Tenderness [Unknown]
  - Musculoskeletal pain [Unknown]
  - Rotator cuff syndrome [Recovered/Resolved]
  - Exostosis [Unknown]
  - Bursitis [Unknown]
  - Bone cyst [Unknown]
  - Osteonecrosis [Unknown]
  - Arthralgia [Unknown]
  - Pain in extremity [Unknown]
  - Myopia [Unknown]
  - Cataract [Unknown]
  - Astigmatism [Unknown]
  - Dysphagia [Unknown]
  - Pulmonary congestion [Unknown]
  - Intervertebral disc degeneration [Unknown]
  - Diverticulum intestinal [Unknown]
  - Venous stenosis [Unknown]
  - Renal cyst [Unknown]
  - Swelling face [Unknown]
  - Abdominal distension [Unknown]
  - Bone pain [Unknown]
  - Intervertebral disc protrusion [Unknown]
  - Muscle atrophy [Unknown]
  - Radiculopathy [Unknown]
  - Dyspepsia [Unknown]
  - Gastritis [Unknown]
  - Pleural effusion [Unknown]
  - Pneumonia [Unknown]
  - Pulmonary fibrosis [Unknown]
  - Tongue amyloidosis [Unknown]
  - Alopecia [Unknown]
  - Neck pain [Unknown]
  - Pericardial effusion [Unknown]
  - Left ventricular hypertrophy [Unknown]
  - Cardiomyopathy [Unknown]
  - Chronic sinusitis [Unknown]
  - Nasal septum deviation [Unknown]
  - Osteolysis [Unknown]
  - Pleural disorder [Unknown]
  - Mass [Unknown]
